FAERS Safety Report 5404028-4 (Version None)
Quarter: 2007Q3

REPORT INFORMATION
  Report Type: 
  Country: None (occurrence: None)
  Receive Date: 20070730
  Receipt Date: 20070625
  Transmission Date: 20080115
  Serious: Yes (Life-Threatening)
  Sender: FDA-Public Use
  Company Number: 6035408

PATIENT
  Age: 42 Year
  Sex: Male

DRUGS (8)
  1. WARFARIN SODIUM [Suspect]
     Indication: DRUG USE FOR UNKNOWN INDICATION
     Dosage: 49 MG (49 MG, 1 IN 1 D), 30 MG (30 MG, 1 IN 1 D); ORAL
     Route: 048
  2. RENAGEL [Suspect]
     Indication: CALCIUM DEFICIENCY
     Dosage: 2400 MG (800 MG, 3 IN 2 D); ORAL
     Route: 048
     Dates: start: 20070406
  3. AMLODIPINE [Concomitant]
  4. ATENOLOL [Concomitant]
  5. FUROSEMIDE [Concomitant]
  6. LISINOPRIL (LISINPRIL) [Concomitant]
  7. SIMVASTATIN [Concomitant]
  8. SODIUM BICARBONATE IN PLASTIC CONTAINER [Concomitant]

REACTIONS (6)
  - CONTUSION [None]
  - DRUG INTERACTION [None]
  - EPISTAXIS [None]
  - HAEMATURIA [None]
  - INTERNATIONAL NORMALISED RATIO INCREASED [None]
  - MELAENA [None]
